FAERS Safety Report 19053819 (Version 1)
Quarter: 2021Q1

REPORT INFORMATION
  Report Type: Report from Study
  Country: DE (occurrence: DE)
  Receive Date: 20210325
  Receipt Date: 20210325
  Transmission Date: 20210420
  Serious: Yes (Other)
  Sender: FDA-Public Use
  Company Number: DE-AMGEN-DEUNI2021044546

PATIENT
  Sex: Female

DRUGS (1)
  1. ERENUMAB [Suspect]
     Active Substance: ERENUMAB
     Indication: MIGRAINE
     Dosage: 140 UNK
     Route: 058
     Dates: start: 20190507

REACTIONS (4)
  - Deep vein thrombosis [Unknown]
  - Coagulopathy [Unknown]
  - Pulmonary embolism [Recovered/Resolved]
  - Goitre [Unknown]

NARRATIVE: CASE EVENT DATE: 20210115
